FAERS Safety Report 18425285 (Version 1)
Quarter: 2020Q4

REPORT INFORMATION
  Report Type: Spontaneous
  Country: ES (occurrence: ES)
  Receive Date: 20201026
  Receipt Date: 20201026
  Transmission Date: 20210114
  Serious: Yes (Other)
  Sender: FDA-Public Use
  Company Number: NVSC2020ES281429

PATIENT
  Age: 46 Year
  Sex: Female
  Weight: 56.1 kg

DRUGS (6)
  1. OXALIPLATIN. [Suspect]
     Active Substance: OXALIPLATIN
     Indication: GASTRIC CANCER
     Dosage: 130 MG/M2 (130 MG/M2 CADA 3 SEMANAS )
     Route: 042
     Dates: start: 20200901, end: 20200922
  2. ORFIDAL [Concomitant]
     Active Substance: LORAZEPAM
     Indication: PRODUCT USED FOR UNKNOWN INDICATION
     Dosage: UNK ( 1 MG COMPRIMIDOS, 50 COMPRIMIDOS)
     Route: 065
  3. FENTANYL TRANSDERMAL SYSTEM [Concomitant]
     Active Substance: FENTANYL
     Indication: PRODUCT USED FOR UNKNOWN INDICATION
     Dosage: UNK
     Route: 065
  4. METFORMINA [Concomitant]
     Active Substance: METFORMIN HYDROCHLORIDE
     Indication: PRODUCT USED FOR UNKNOWN INDICATION
     Dosage: UNK ( 850 MG 50 COMPRIMIDOS)
     Route: 065
  5. MOTILIUM [Concomitant]
     Active Substance: DOMPERIDONE
     Indication: PRODUCT USED FOR UNKNOWN INDICATION
     Dosage: UNK ( 10 MG COMPRIMIDOS RECUBIERTOS CON PELICULA, 30 COMPRIMIDOS)
     Route: 065
  6. PANTOPRAZOL [Concomitant]
     Active Substance: PANTOPRAZOLE SODIUM
     Indication: PRODUCT USED FOR UNKNOWN INDICATION
     Dosage: UNK ( 20 MG 28 COMPRIMIDOS)
     Route: 065

REACTIONS (3)
  - Paraparesis [Recovered/Resolved]
  - Monoparesis [Recovered/Resolved]
  - Dysaesthesia pharynx [Recovered/Resolved]

NARRATIVE: CASE EVENT DATE: 20200922
